FAERS Safety Report 10183101 (Version 1)
Quarter: 2014Q2

REPORT INFORMATION
  Report Type: Spontaneous
  Country: US (occurrence: None)
  Receive Date: 20140425
  Receipt Date: 20140425
  Transmission Date: 20141212
  Serious: No
  Sender: FDA-Public Use
  Company Number: AP356-00495-SPO-US

PATIENT
  Age: 41 Year
  Sex: Female
  Weight: 72.27 kg

DRUGS (2)
  1. BELVIQ [Suspect]
     Indication: WEIGHT CONTROL
     Dosage: 20MG, 2 IN 1 D, ORAL
     Route: 048
     Dates: start: 20140301
  2. IBUPROFEN (IBUPROFEN) [Concomitant]

REACTIONS (5)
  - Tinnitus [None]
  - Hyperhidrosis [None]
  - Crying [None]
  - Insomnia [None]
  - Drug ineffective [None]
